FAERS Safety Report 7638162-5 (Version None)
Quarter: 2011Q3

REPORT INFORMATION
  Report Type: 
  Country: None (occurrence: None)
  Receive Date: 20110727
  Receipt Date: 20110716
  Transmission Date: 20111222
  Serious: Yes (Other)
  Sender: FDA-Public Use
  Company Number: US-JNJFOC-20110707609

PATIENT
  Age: 76 Year
  Sex: Female

DRUGS (7)
  1. EXTRA STRENGTH TYLENOL [Suspect]
     Indication: MYALGIA
     Route: 048
     Dates: start: 20010101
  2. EXTRA STRENGTH TYLENOL [Suspect]
     Indication: HEADACHE
     Route: 048
     Dates: start: 20010101
  3. AMLODIPINE BESYLATE [Concomitant]
     Route: 065
  4. ASPIRIN [Concomitant]
     Route: 065
  5. LISINOPRIL [Concomitant]
     Route: 065
  6. METOPROLOL TARTRATE [Concomitant]
     Route: 065
  7. ESOMEPRAZOLE MAGNESIUM [Concomitant]
     Route: 065

REACTIONS (4)
  - PULMONARY OEDEMA [None]
  - DYSPNOEA [None]
  - FATIGUE [None]
  - PRODUCT QUALITY ISSUE [None]
